FAERS Safety Report 8116602-5 (Version None)
Quarter: 2012Q1

REPORT INFORMATION
  Report Type: 
  Country: None (occurrence: None)
  Receive Date: 20120206
  Receipt Date: 20120124
  Transmission Date: 20120608
  Serious: Yes (Other)
  Sender: FDA-Public Use
  Company Number: PHHY2012BR007844

PATIENT
  Age: 63 Year
  Sex: Male

DRUGS (2)
  1. ZELMAC [Suspect]
     Indication: COLITIS
     Dosage: 1 DF, UNK
     Route: 048
  2. ANTIBIOTICS [Concomitant]

REACTIONS (4)
  - ANEURYSM [None]
  - LIVER DISORDER [None]
  - POST PROCEDURAL COMPLICATION [None]
  - OEDEMA [None]
